FAERS Safety Report 8027947-1 (Version None)
Quarter: 2012Q1

REPORT INFORMATION
  Report Type: 
  Country: None (occurrence: None)
  Receive Date: 20120106
  Receipt Date: 20111229
  Transmission Date: 20120608
  Serious: Yes (Life-Threatening, Hospitalization, Other)
  Sender: FDA-Public Use
  Company Number: ES-B.I. PHARMACEUTICALS,INC./RIDGEFIELD-2011-EU-01352GD

PATIENT
  Sex: Female

DRUGS (3)
  1. STAVUDINE [Suspect]
     Indication: HIV INFECTION
     Dates: start: 19980701
  2. NEVIRAPINE [Suspect]
     Indication: HIV INFECTION
     Dates: start: 19980701
  3. DIDANOSINE [Suspect]
     Indication: HIV INFECTION
     Dates: start: 19980701

REACTIONS (10)
  - CHOLESTASIS [None]
  - SPLENIC VEIN THROMBOSIS [None]
  - PORTAL VEIN THROMBOSIS [None]
  - PORTAL HYPERTENSION [None]
  - HAEMATEMESIS [None]
  - VIROLOGIC FAILURE [None]
  - OESOPHAGEAL VARICES HAEMORRHAGE [None]
  - UPPER GASTROINTESTINAL HAEMORRHAGE [None]
  - LIVER DISORDER [None]
  - ASCITES [None]
